FAERS Safety Report 14745198 (Version 1)
Quarter: 2018Q2

REPORT INFORMATION
  Report Type: Spontaneous
  Country: US (occurrence: US)
  Receive Date: 20180411
  Receipt Date: 20180411
  Transmission Date: 20180711
  Serious: No
  Sender: FDA-Public Use
  Company Number: US-ASTRAZENECA-2018SE40503

PATIENT
  Age: 19919 Day
  Sex: Female
  Weight: 38.6 kg

DRUGS (2)
  1. TAGRISSO [Suspect]
     Active Substance: OSIMERTINIB
     Indication: METASTASES TO MENINGES
     Route: 048
     Dates: start: 20180314
  2. TAGRISSO [Suspect]
     Active Substance: OSIMERTINIB
     Indication: LUNG NEOPLASM MALIGNANT
     Route: 048
     Dates: start: 20180314

REACTIONS (4)
  - Product solubility abnormal [Unknown]
  - Procedural complication [Unknown]
  - Vomiting [Unknown]
  - Product use complaint [Unknown]

NARRATIVE: CASE EVENT DATE: 20180327
